FAERS Safety Report 25395380 (Version 1)
Quarter: 2025Q2

REPORT INFORMATION
  Report Type: Spontaneous
  Country: US (occurrence: US)
  Receive Date: 20250604
  Receipt Date: 20250604
  Transmission Date: 20250716
  Serious: Yes (Hospitalization, Other)
  Sender: MYLAN
  Company Number: US-MYLANLABS-2025M1047079

PATIENT
  Age: 64 Year
  Sex: Male

DRUGS (6)
  1. METHOTREXATE [Suspect]
     Active Substance: METHOTREXATE
     Indication: Hypergammaglobulinaemia benign monoclonal
  2. METHOTREXATE [Suspect]
     Active Substance: METHOTREXATE
     Indication: Necrotising myositis
  3. PREDNISONE [Suspect]
     Active Substance: PREDNISONE
     Indication: Hypergammaglobulinaemia benign monoclonal
     Dosage: 40 MILLIGRAM, QD
  4. PREDNISONE [Suspect]
     Active Substance: PREDNISONE
     Indication: Necrotising myositis
  5. AZATHIOPRINE [Suspect]
     Active Substance: AZATHIOPRINE
     Indication: Hypergammaglobulinaemia benign monoclonal
     Dosage: 50 MILLIGRAM, QD
  6. AZATHIOPRINE [Suspect]
     Active Substance: AZATHIOPRINE
     Indication: Necrotising myositis
     Dosage: 100 MILLIGRAM, QD

REACTIONS (3)
  - Leukopenia [Unknown]
  - Drug ineffective [Unknown]
  - Off label use [Unknown]
